FAERS Safety Report 5305014-5 (Version None)
Quarter: 2007Q2

REPORT INFORMATION
  Report Type: 
  Country: None (occurrence: None)
  Receive Date: 20070423
  Receipt Date: 20070411
  Transmission Date: 20071010
  Serious: Yes (Other)
  Sender: FDA-Public Use
  Company Number: US-PFIZER INC-2007019087

PATIENT
  Sex: Male

DRUGS (6)
  1. LIPITOR [Suspect]
  2. PLAVIX [Concomitant]
  3. ALTACE [Concomitant]
  4. METOPROLOL SUCCINATE [Concomitant]
  5. REQUIP [Concomitant]
  6. ACETYLSALICYLIC ACID SRT [Concomitant]

REACTIONS (2)
  - DYSKINESIA [None]
  - HYPERTENSION [None]
